FAERS Safety Report 24235308 (Version 3)
Quarter: 2024Q3

REPORT INFORMATION
  Report Type: Spontaneous
  Country: US (occurrence: US)
  Receive Date: 20240821
  Receipt Date: 20240916
  Transmission Date: 20241016
  Serious: No
  Sender: BAUSCH AND LOMB
  Company Number: US-BAUSCHBL-2024BNL031810

PATIENT

DRUGS (1)
  1. XIIDRA [Suspect]
     Active Substance: LIFITEGRAST
     Indication: Dry eye
     Route: 065
     Dates: end: 2024

REACTIONS (7)
  - Vision blurred [Recovered/Resolved]
  - Vertigo [Unknown]
  - Nausea [Unknown]
  - Patient dissatisfaction with treatment [Unknown]
  - Product dose omission in error [Unknown]
  - Product container issue [Unknown]
  - Product use complaint [Unknown]
